FAERS Safety Report 8434927-0 (Version None)
Quarter: 2012Q2

REPORT INFORMATION
  Report Type: 
  Country: None (occurrence: None)
  Receive Date: 20120614
  Receipt Date: 20120608
  Transmission Date: 20120825
  Serious: Yes (Other)
  Sender: FDA-Public Use
  Company Number: US-PFIZER INC-2010106613

PATIENT
  Sex: Male

DRUGS (5)
  1. TRICOR [Concomitant]
     Dosage: 145 MG, 1X/DAY
     Route: 048
     Dates: start: 20050214, end: 20060213
  2. PLAVIX [Concomitant]
     Dosage: 75 MG, 1X/DAY
     Route: 048
     Dates: start: 20040524, end: 20071126
  3. DILANTIN KAPSEAL [Suspect]
     Dosage: 100 MG, 4 KAPSEAL AT BEDTIME
     Route: 048
     Dates: start: 20031125
  4. XANAX [Concomitant]
     Dosage: ONE TABLET, EVERY 4 TO 6 HOURS
     Route: 048
     Dates: start: 20050413, end: 20060110
  5. VERAPAMIL [Concomitant]
     Dosage: 120 MG, AT EVERY NIGHT AT BED TIME
     Route: 048
     Dates: start: 20050223, end: 20060222

REACTIONS (1)
  - STEVENS-JOHNSON SYNDROME [None]
